FAERS Safety Report 5628647-5 (Version None)
Quarter: 2008Q1

REPORT INFORMATION
  Report Type: 
  Country: None (occurrence: None)
  Receive Date: 20080214
  Receipt Date: 20080214
  Transmission Date: 20080703
  Serious: Yes (Hospitalization)
  Sender: FDA-Public Use
  Company Number: None

PATIENT
  Age: 66 Year
  Sex: Male
  Weight: 51.7 kg

DRUGS (1)
  1. PHENYTOIN [Suspect]
     Indication: CONVULSION
     Dosage: 250MG HS PO
     Route: 048
     Dates: start: 19950721

REACTIONS (4)
  - ALCOHOL USE [None]
  - ASTHENIA [None]
  - ATAXIA [None]
  - THERAPEUTIC AGENT TOXICITY [None]
